FAERS Safety Report 19201870 (Version 1)
Quarter: 2021Q2

REPORT INFORMATION
  Report Type: Report from Study
  Country: BR (occurrence: BR)
  Receive Date: 20210430
  Receipt Date: 20210430
  Transmission Date: 20210717
  Serious: Yes (Hospitalization, Other)
  Sender: FDA-Public Use
  Company Number: BR-TAKEDA-BR201404350

PATIENT
  Age: 11 Year
  Sex: Male

DRUGS (5)
  1. IDURSULFASE [Suspect]
     Active Substance: IDURSULFASE
     Dosage: UNK, 1X/2WKS
     Route: 042
     Dates: start: 20120131
  2. PERICIAZINE [Concomitant]
     Active Substance: PERICIAZINE
     Indication: BEHAVIOUR DISORDER
  3. IDURSULFASE [Suspect]
     Active Substance: IDURSULFASE
     Indication: MUCOPOLYSACCHARIDOSIS II
     Dosage: 6 MG, UNKNOWN
     Route: 041
     Dates: start: 20071123
  4. IDURSULFASE [Suspect]
     Active Substance: IDURSULFASE
     Dosage: 12 MG, 1X/WEEK
     Route: 041
     Dates: start: 20090629
  5. RISPERIDONE. [Concomitant]
     Active Substance: RISPERIDONE
     Indication: BEHAVIOUR DISORDER

REACTIONS (4)
  - Seizure [Recovered/Resolved]
  - Rash macular [Recovered/Resolved]
  - Fall [Recovered/Resolved]
  - Hydrocephalus [Recovered/Resolved]

NARRATIVE: CASE EVENT DATE: 20140715
